FAERS Safety Report 23884478 (Version 1)
Quarter: 2024Q2

REPORT INFORMATION
  Report Type: Spontaneous
  Country: US (occurrence: None)
  Receive Date: 20240522
  Receipt Date: 20240522
  Transmission Date: 20240716
  Serious: Yes (Hospitalization)
  Sender: FDA-Public Use
  Company Number: None

PATIENT
  Sex: Female

DRUGS (3)
  1. OXBRYTA [Suspect]
     Active Substance: VOXELOTOR
     Dosage: FREQUENCY : DAILY;?
     Route: 048
     Dates: start: 202312
  2. DEFERASIROX [Suspect]
     Active Substance: DEFERASIROX
     Route: 048
     Dates: start: 202311
  3. HYDROXYUREA [Concomitant]
     Active Substance: HYDROXYUREA

REACTIONS (1)
  - Diabetes mellitus [None]
